FAERS Safety Report 8322497-7 (Version None)
Quarter: 2012Q2

REPORT INFORMATION
  Report Type: 
  Country: None (occurrence: None)
  Receive Date: 20120430
  Receipt Date: 20120426
  Transmission Date: 20120825
  Serious: Yes (Life-Threatening)
  Sender: FDA-Public Use
  Company Number: JP-B.I. PHARMACEUTICALS,INC./RIDGEFIELD-2012-BP-09545NB

PATIENT
  Age: 63 Year
  Sex: Male

DRUGS (4)
  1. MADOPAR [Concomitant]
     Indication: PARKINSON'S DISEASE
     Route: 048
  2. ARTANE [Concomitant]
     Indication: PARKINSON'S DISEASE
     Route: 048
  3. COMTAN [Concomitant]
     Indication: PARKINSON'S DISEASE
     Route: 048
  4. PRAMIPEXOLE DIHYDROCHLORIDE [Suspect]
     Indication: PARKINSON'S DISEASE
     Dosage: 1.125 MG
     Route: 048
     Dates: start: 20120201, end: 20120301

REACTIONS (1)
  - SUDDEN ONSET OF SLEEP [None]
